FAERS Safety Report 8506841-3 (Version None)
Quarter: 2012Q3

REPORT INFORMATION
  Report Type: 
  Country: None (occurrence: None)
  Receive Date: 20120712
  Receipt Date: 20120628
  Transmission Date: 20120928
  Serious: Yes (Hospitalization)
  Sender: FDA-Public Use
  Company Number: GB-UCBSA-061257

PATIENT
  Age: 24 Month
  Sex: Female

DRUGS (1)
  1. METHYLPHENIDATE HCL [Suspect]
     Dosage: 10 MG, ONE DOSE
     Route: 048
     Dates: start: 20120601, end: 20120601

REACTIONS (1)
  - ACCIDENTAL DRUG INTAKE BY CHILD [None]
